FAERS Safety Report 23070427 (Version 4)
Quarter: 2023Q4

REPORT INFORMATION
  Report Type: Spontaneous
  Country: US (occurrence: US)
  Receive Date: 20231016
  Receipt Date: 20231109
  Transmission Date: 20240110
  Serious: Yes (Other)
  Sender: FDA-Public Use
  Company Number: US-ORGANON-O2310USA001478

PATIENT
  Sex: Female
  Weight: 68.934 kg

DRUGS (5)
  1. NEXPLANON [Suspect]
     Active Substance: ETONOGESTREL
     Indication: Contraception
     Dosage: 1 IMPLANT OF 68 MG; LEFT UPPER ARM, FREQUENCY: CONTINUOUS
     Route: 059
     Dates: start: 20230511, end: 20231107
  2. ZYRTEC [Concomitant]
     Active Substance: CETIRIZINE HYDROCHLORIDE
     Indication: Hypersensitivity
     Dosage: 10 MILLIGRAM, DAILY (QD)
     Route: 048
     Dates: start: 20230328
  3. FLONASE [Concomitant]
     Active Substance: FLUTICASONE PROPIONATE
     Indication: Hypersensitivity
     Dosage: 1 SPRAY EACH NOSTRIL DAILY (QD)
     Route: 045
     Dates: start: 20230328
  4. ONDANSETRON [Concomitant]
     Active Substance: ONDANSETRON
     Indication: Nausea
     Dosage: 24 MG
     Route: 048
     Dates: start: 20230501
  5. ONDANSETRON [Concomitant]
     Active Substance: ONDANSETRON
     Dosage: 24 MG
     Route: 048
     Dates: start: 20230501

REACTIONS (5)
  - Device dislocation [Recovered/Resolved]
  - Device kink [Recovered/Resolved]
  - Device placement issue [Recovered/Resolved]
  - Implant site pain [Recovering/Resolving]
  - Discomfort [Not Recovered/Not Resolved]

NARRATIVE: CASE EVENT DATE: 20230101
